FAERS Safety Report 10993410 (Version 1)
Quarter: 2015Q2

REPORT INFORMATION
  Report Type: Not Available
  Country: US (occurrence: US)
  Receive Date: 20150407
  Receipt Date: 20150407
  Transmission Date: 20150821
  Serious: Yes (Other)
  Sender: FDA-Public Use
  Company Number: US-LUPIN PHARMACEUTICALS INC.-E2B_00003370

PATIENT
  Sex: Female
  Weight: 106.24 kg

DRUGS (11)
  1. PROTONIX [Concomitant]
     Active Substance: PANTOPRAZOLE SODIUM
     Indication: GASTROOESOPHAGEAL REFLUX DISEASE
  2. SIMVASTATIN. [Concomitant]
     Active Substance: SIMVASTATIN
     Indication: HYPERCHOLESTEROLAEMIA
     Route: 065
  3. CALCIUM + VITAMIN D [Concomitant]
     Active Substance: CALCIUM\VITAMIN D
     Indication: ROUTINE HEALTH MAINTENANCE
  4. QUETIAPINE FUMARATE TABLETS 50 MG [Suspect]
     Active Substance: QUETIAPINE FUMARATE
     Indication: DEPRESSION
     Dates: start: 2014, end: 201503
  5. METFORMIN [Concomitant]
     Active Substance: METFORMIN HYDROCHLORIDE
     Indication: GLUCOSE TOLERANCE IMPAIRED
  6. CLONAZEPAM. [Concomitant]
     Active Substance: CLONAZEPAM
     Indication: ANXIETY
  7. FISH OIL [Concomitant]
     Active Substance: FISH OIL
     Indication: ROUTINE HEALTH MAINTENANCE
     Dosage: UNKNOWN
  8. QUETIAPINE FUMARATE TABLETS 50 MG [Suspect]
     Active Substance: QUETIAPINE FUMARATE
     Dates: start: 201503
  9. QUETIAPINE FUMARATE TABLETS 50 MG [Suspect]
     Active Substance: QUETIAPINE FUMARATE
     Dates: start: 201503
  10. IBUPROFEN. [Concomitant]
     Active Substance: IBUPROFEN
     Indication: ARTHRITIS
     Dosage: AS NEEDED UP TO 8 TABLETS DAILY
  11. QUETIAPINE FUMARATE TABLETS 50 MG [Suspect]
     Active Substance: QUETIAPINE FUMARATE

REACTIONS (6)
  - Weight increased [Not Recovered/Not Resolved]
  - Irritability [Recovered/Resolved]
  - Inappropriate schedule of drug administration [Unknown]
  - Wrong technique in drug usage process [Unknown]
  - Stupor [Not Recovered/Not Resolved]
  - Hyperhidrosis [Not Recovered/Not Resolved]

NARRATIVE: CASE EVENT DATE: 201503
